FAERS Safety Report 18653448 (Version 20)
Quarter: 2021Q3

REPORT INFORMATION
  Report Type: Spontaneous
  Country: GB (occurrence: GB)
  Receive Date: 20201222
  Receipt Date: 20210914
  Transmission Date: 20211014
  Serious: Yes (Death, Hospitalization, Disabling, Other)
  Sender: FDA-Public Use
  Company Number: GB-AUROBINDO-AUR-APL-2018-024589

PATIENT
  Age: 67 Year
  Sex: Female

DRUGS (33)
  1. VORHYALURONIDASE ALFA [Suspect]
     Active Substance: HYALURONIDASE (HUMAN RECOMBINANT)
     Dosage: 600 MG, EVERY 3 WEEKS
     Route: 058
     Dates: start: 20160531
  2. PACLITAXEL. [Suspect]
     Active Substance: PACLITAXEL
     Indication: HER2 POSITIVE BREAST CANCER
     Dosage: 141 MG, UNK
     Route: 042
     Dates: start: 20151124, end: 20151221
  3. TAMOXIFEN TABLET [Suspect]
     Active Substance: TAMOXIFEN
     Indication: BREAST CANCER METASTATIC
     Dosage: 600 MILLIGRAM 3 WEEK
     Route: 048
  4. ADALIMUMAB [Suspect]
     Active Substance: ADALIMUMAB
     Indication: PRODUCT USED FOR UNKNOWN INDICATION
     Dosage: 40 MILLIGRAM, ONCE EVERY 2 WEEK
     Route: 058
  5. ADALIMUMAB [Suspect]
     Active Substance: ADALIMUMAB
     Dosage: 40 MILLIGRAM, Q2WK
     Route: 058
     Dates: start: 20151124
  6. ADALIMUMAB [Suspect]
     Active Substance: ADALIMUMAB
     Dosage: 40 MG Q2W
     Route: 058
  7. TRASTUZUMAB. [Suspect]
     Active Substance: TRASTUZUMAB
     Indication: HER2 POSITIVE BREAST CANCER
     Dosage: 600 MG, EVERY 3 WEEKS
     Route: 058
     Dates: start: 20151124, end: 20151221
  8. EXEMESTANE. [Suspect]
     Active Substance: EXEMESTANE
     Indication: HER2 POSITIVE BREAST CANCER
     Dosage: UNK,LAST DOSE ON 12/JUL/2016
     Route: 065
  9. HYALURONIDASE [Suspect]
     Active Substance: HYALURONIDASE
     Indication: HER2 POSITIVE BREAST CANCER
     Dosage: 600 UNK
     Route: 058
     Dates: start: 20151124, end: 20151221
  10. TAMOXIFEN [Suspect]
     Active Substance: TAMOXIFEN
     Indication: HER2 POSITIVE BREAST CANCER
     Dosage: 20 MG, 1X/DAY
     Route: 048
     Dates: start: 20160712, end: 20160802
  11. VORHYALURONIDASE ALFA [Suspect]
     Active Substance: HYALURONIDASE (HUMAN RECOMBINANT)
     Indication: HER2 POSITIVE BREAST CANCER
     Dosage: 600 MG, EVERY 3 WEEKS
     Route: 058
     Dates: start: 20151124, end: 20151221
  12. HYALURONIDASE [Suspect]
     Active Substance: HYALURONIDASE
     Dosage: 600 MILLIGRAM, Q3WK
     Route: 058
     Dates: start: 20160531
  13. ADCAL D3 [Concomitant]
     Active Substance: CALCIUM CARBONATE\CHOLECALCIFEROL
     Indication: PRODUCT USED FOR UNKNOWN INDICATION
     Dosage: 1.5 GRAM, ONCE A DAY
     Route: 048
     Dates: start: 20101221, end: 201511
  14. TAMOXIFEN TABLET [Suspect]
     Active Substance: TAMOXIFEN
     Indication: HER2 POSITIVE BREAST CANCER
     Dosage: 20 MILLIGRAM, ONCE A DAY
     Route: 048
     Dates: start: 20160712, end: 20160802
  15. CAPECITABINE. [Suspect]
     Active Substance: CAPECITABINE
     Indication: HER2 POSITIVE BREAST CANCER
     Dosage: 1300 MG, 2X/DAY
     Route: 048
     Dates: start: 20161213, end: 20161216
  16. CAPECITABINE. [Suspect]
     Active Substance: CAPECITABINE
     Indication: BREAST CANCER METASTATIC
     Dosage: 1000 MILLIGRAM, EVERY 4 DAYS
     Route: 048
  17. CAPECITABINE. [Suspect]
     Active Substance: CAPECITABINE
     Dosage: 1000 MG
     Route: 048
  18. PACLITAXEL. [Suspect]
     Active Substance: PACLITAXEL
     Indication: BREAST CANCER METASTATIC
     Dosage: 141 MILLIGRAM
     Route: 042
     Dates: start: 20161122
  19. OMEPRAZOLE. [Concomitant]
     Active Substance: OMEPRAZOLE
     Dosage: 20 MG, 1X/DAY
     Route: 048
     Dates: end: 20170530
  20. COLECALCIFEROL [Concomitant]
     Active Substance: CHOLECALCIFEROL
     Indication: PRODUCT USED FOR UNKNOWN INDICATION
     Dosage: 1.5 GRAM, ONCE A DAY
     Route: 048
     Dates: start: 20101221
  21. PACLITAXEL. [Suspect]
     Active Substance: PACLITAXEL
     Indication: BREAST CANCER METASTATIC
     Dosage: 141 MILLIGRAM
     Route: 042
  22. EXEMESTANE. [Suspect]
     Active Substance: EXEMESTANE
     Indication: BREAST CANCER METASTATIC
     Dosage: 25 MG, 1X/DAY
     Route: 048
     Dates: start: 20160531, end: 20160610
  23. ADCAL D3 [Concomitant]
     Active Substance: CALCIUM CARBONATE\CHOLECALCIFEROL
     Dosage: 1 DOSAGE FORM, ONCE A DAY
     Route: 048
     Dates: start: 20101221, end: 201511
  24. TRASTUZUMAB. [Suspect]
     Active Substance: TRASTUZUMAB
     Indication: BREAST CANCER METASTATIC
     Dosage: 600 MG, EVERY 3 WEEKS
     Route: 058
     Dates: start: 20160531
  25. EXEMESTANE. [Suspect]
     Active Substance: EXEMESTANE
     Dosage: UNK
     Route: 065
     Dates: start: 20160712
  26. OMEPRAZOLE. [Concomitant]
     Active Substance: OMEPRAZOLE
     Indication: PRODUCT USED FOR UNKNOWN INDICATION
     Dosage: 1 DOSAGE FORM, ONCE A DAY
     Route: 048
  27. PACLITAXEL. [Suspect]
     Active Substance: PACLITAXEL
     Dosage: UNK
     Route: 065
     Dates: start: 20161124
  28. TRASTUZUMAB. [Suspect]
     Active Substance: TRASTUZUMAB
     Indication: HER2 POSITIVE BREAST CANCER
  29. ENOXAPARIN [Concomitant]
     Active Substance: ENOXAPARIN
     Indication: THROMBOSIS PROPHYLAXIS
     Dosage: 20 MG, 1X/DAY
     Route: 058
     Dates: start: 20160106
  30. ENOXAPARIN [Concomitant]
     Active Substance: ENOXAPARIN
     Indication: EMBOLISM VENOUS
  31. ADCAL?D3 [Concomitant]
     Active Substance: CALCIUM CARBONATE\CHOLECALCIFEROL
     Indication: PRODUCT USED FOR UNKNOWN INDICATION
     Dosage: 1.5 G, 1X/DAY
     Route: 048
     Dates: start: 20101221, end: 201511
  32. CAPECITABINE. [Suspect]
     Active Substance: CAPECITABINE
     Indication: BREAST CANCER METASTATIC
     Dosage: 1500 MG, UNK
     Route: 048
     Dates: start: 20161122, end: 20161213
  33. ENOXAPARIN [Concomitant]
     Active Substance: ENOXAPARIN
     Indication: EMBOLISM VENOUS
     Dosage: 20 MG, 1X/DAY
     Route: 058
     Dates: start: 20160104, end: 20160106

REACTIONS (35)
  - Sensory disturbance [Not Recovered/Not Resolved]
  - Ascites [Not Recovered/Not Resolved]
  - Hypokalaemia [Recovered/Resolved]
  - Hypoalbuminaemia [Recovered/Resolved]
  - Hypernatraemia [Recovered/Resolved]
  - Alanine aminotransferase increased [Recovered/Resolved]
  - Blood phosphorus increased [Recovered/Resolved]
  - Aspartate aminotransferase increased [Recovered/Resolved]
  - Constipation [Recovered/Resolved]
  - Neutrophil count increased [Recovered/Resolved]
  - Blood alkaline phosphatase increased [Recovered/Resolved]
  - Blood creatinine increased [Recovered/Resolved]
  - C-reactive protein increased [Unknown]
  - Balance disorder [Not Recovered/Not Resolved]
  - Death [Fatal]
  - Cerebral haemorrhage [Recovered/Resolved]
  - Dyspnoea [Recovered/Resolved]
  - Hypertension [Recovered/Resolved with Sequelae]
  - Vomiting [Recovered/Resolved]
  - Blood urea increased [Unknown]
  - Pyrexia [Recovered/Resolved]
  - Protein total decreased [Recovered/Resolved]
  - Lymphopenia [Recovered/Resolved with Sequelae]
  - Agitation [Recovered/Resolved]
  - Fatigue [Recovered/Resolved]
  - Blood glucose increased [Recovered/Resolved]
  - White blood cell count increased [Recovered/Resolved]
  - Asthenia [Not Recovered/Not Resolved]
  - Haemoglobin decreased [Not Recovered/Not Resolved]
  - Urinary tract infection [Unknown]
  - Blood bilirubin increased [Recovered/Resolved]
  - Pain [Recovered/Resolved]
  - Nausea [Recovered/Resolved]
  - Diarrhoea [Recovered/Resolved]
  - Sensory loss [Not Recovered/Not Resolved]

NARRATIVE: CASE EVENT DATE: 20151110
